FAERS Safety Report 4505787-5 (Version None)
Quarter: 2004Q4

REPORT INFORMATION
  Report Type: 
  Country: None (occurrence: None)
  Receive Date: 20041119
  Receipt Date: 20041110
  Transmission Date: 20050328
  Serious: Yes (Hospitalization, Other)
  Sender: FDA-Public Use
  Company Number: FR-BRISTOL-MYERS SQUIBB COMPANY-12760815

PATIENT
  Age: 59 Year
  Sex: Female

DRUGS (5)
  1. COAPROVEL TABS [Interacting]
     Dosage: DOSAGE UNKNOWN
     Route: 048
  2. TEGRETOL [Interacting]
     Route: 048
  3. CLAMOXYL [Suspect]
     Indication: HELICOBACTER GASTRITIS
     Route: 048
     Dates: start: 20040617
  4. NAXY [Suspect]
     Indication: HELICOBACTER GASTRITIS
     Route: 048
     Dates: start: 20040617
  5. OGAST [Suspect]
     Indication: GASTRITIS
     Route: 048
     Dates: start: 20040617, end: 20040629

REACTIONS (8)
  - ABDOMINAL PAIN UPPER [None]
  - BLOOD LACTATE DEHYDROGENASE INCREASED [None]
  - DRUG INTERACTION [None]
  - FALL [None]
  - HYPOKALAEMIA [None]
  - HYPONATRAEMIA [None]
  - NAUSEA [None]
  - VOMITING [None]
